FAERS Safety Report 4883703-4 (Version None)
Quarter: 2006Q1

REPORT INFORMATION
  Report Type: 
  Country: None (occurrence: None)
  Receive Date: 20060118
  Receipt Date: 20060110
  Transmission Date: 20060701
  Serious: Yes (Life-Threatening)
  Sender: FDA-Public Use
  Company Number: PHBS2006PH00673

PATIENT
  Sex: Male

DRUGS (2)
  1. ZOMETA [Suspect]
     Indication: PROSTATE CANCER
     Dates: start: 20050101
  2. HORMONES [Concomitant]

REACTIONS (2)
  - OSTEONECROSIS [None]
  - WOUND DRAINAGE [None]
